FAERS Safety Report 25898350 (Version 1)
Quarter: 2025Q4

REPORT INFORMATION
  Report Type: Report from Study
  Country: CA (occurrence: CA)
  Receive Date: 20251008
  Receipt Date: 20251008
  Transmission Date: 20260118
  Serious: Yes (Death, Hospitalization)
  Sender: DIZAL (JIANGSU) PHARMACEUTICAL CO., LTD.
  Company Number: CA-DIZAL-2025CA00298

PATIENT
  Sex: Male

DRUGS (1)
  1. SUNVOZERTINIB [Suspect]
     Active Substance: SUNVOZERTINIB

REACTIONS (2)
  - Pneumonitis [Fatal]
  - Anaemia [Unknown]

NARRATIVE: CASE EVENT DATE: 20250920
